FAERS Safety Report 15597136 (Version 5)
Quarter: 2019Q1

REPORT INFORMATION
  Report Type: Spontaneous
  Country: JP (occurrence: JP)
  Receive Date: 20181108
  Receipt Date: 20190115
  Transmission Date: 20190417
  Serious: Yes (Other)
  Sender: FDA-Public Use
  Company Number: JP-ORION CORPORATION ORION PHARMA-ENT 2018-0121

PATIENT
  Age: 70 Year
  Sex: Female

DRUGS (3)
  1. PURGATIV [Concomitant]
     Indication: CONSTIPATION
     Route: 065
  2. ANTI-PARKINSON AGENTS [Concomitant]
     Indication: PARKINSON^S DISEASE
     Route: 065
  3. COMTAN [Suspect]
     Active Substance: ENTACAPONE
     Indication: PARKINSON^S DISEASE
     Route: 048

REACTIONS (1)
  - Blood pressure fluctuation [Recovering/Resolving]
